FAERS Safety Report 7198741-9 (Version None)
Quarter: 2010Q4

REPORT INFORMATION
  Report Type: 
  Country: None (occurrence: None)
  Receive Date: 20101227
  Receipt Date: 20100212
  Transmission Date: 20110411
  Serious: No
  Sender: FDA-Public Use
  Company Number: US-ABBOTT-10P-163-0626567-00

PATIENT
  Sex: Male

DRUGS (2)
  1. LUPRON DEPOT [Suspect]
     Indication: PROSTATE CANCER
     Route: 050
     Dates: start: 20050101, end: 20091101
  2. LUPRON DEPOT [Suspect]
     Route: 050
     Dates: start: 20091101, end: 20100101

REACTIONS (1)
  - DRUG ADMINISTRATION ERROR [None]
